FAERS Safety Report 18096746 (Version 1)
Quarter: 2020Q3

REPORT INFORMATION
  Report Type: Spontaneous
  Country: US (occurrence: US)
  Receive Date: 20200730
  Receipt Date: 20200730
  Transmission Date: 20201103
  Serious: Yes (Hospitalization, Disabling, Other)
  Sender: FDA-Public Use
  Company Number: US-PURDUE-USA-2020-0153447

PATIENT
  Sex: Male

DRUGS (3)
  1. OXYCONTIN [Suspect]
     Active Substance: OXYCODONE HYDROCHLORIDE
     Indication: PAIN
     Dosage: (20MG) 1 TABLET, BID
     Route: 048
     Dates: start: 2005
  2. OXYCONTIN [Suspect]
     Active Substance: OXYCODONE HYDROCHLORIDE
     Dosage: (40MG) 1 TABLET, BID
     Route: 048
  3. OXYCONTIN [Suspect]
     Active Substance: OXYCODONE HYDROCHLORIDE
     Dosage: (80MG) 1 TABLET, BID
     Route: 048

REACTIONS (14)
  - Vomiting [Unknown]
  - Rotator cuff repair [Unknown]
  - Pain [Unknown]
  - Seizure [Recovered/Resolved]
  - Drug dependence [Not Recovered/Not Resolved]
  - Drug withdrawal syndrome [Recovered/Resolved]
  - Blood pressure increased [Recovered/Resolved]
  - Impaired work ability [Unknown]
  - Migraine [Unknown]
  - Dehydration [Unknown]
  - Hyperhidrosis [Unknown]
  - Amnesia [Not Recovered/Not Resolved]
  - Unevaluable event [Unknown]
  - Lung disorder [Unknown]

NARRATIVE: CASE EVENT DATE: 2005
